FAERS Safety Report 5802951-X (Version None)
Quarter: 2008Q3

REPORT INFORMATION
  Report Type: 
  Country: None (occurrence: None)
  Receive Date: 20080708
  Receipt Date: 20080702
  Transmission Date: 20090109
  Serious: Yes (Other)
  Sender: FDA-Public Use
  Company Number: US-ROCHE-569590

PATIENT
  Sex: Female
  Weight: 65.3 kg

DRUGS (2)
  1. CAPECITABINE [Suspect]
     Indication: BREAST CANCER
     Dosage: ON 2 DAYS OFF. 1500 MG IN THE MORNING AND 1000 MG IN THE EVENING
     Route: 048
     Dates: start: 20080404
  2. CAPECITABINE [Suspect]
     Dosage: 1500 MG IN THE MORNING AND 1000 MG IN THE EVENING.
     Route: 048
     Dates: start: 20080610, end: 20080626

REACTIONS (3)
  - DISEASE PROGRESSION [None]
  - ERYTHEMA [None]
  - GAIT DISTURBANCE [None]
